FAERS Safety Report 10043822 (Version 1)
Quarter: 2014Q1

REPORT INFORMATION
  Report Type: Spontaneous
  Country: US (occurrence: US)
  Receive Date: 20140328
  Receipt Date: 20140328
  Transmission Date: 20141002
  Serious: Yes (Other)
  Sender: FDA-Public Use
  Company Number: US-PFIZER INC-2014087118

PATIENT
  Age: 77 Year
  Sex: Female
  Weight: 61.22 kg

DRUGS (5)
  1. CHANTIX [Suspect]
     Indication: SMOKING CESSATION THERAPY
     Dosage: 0.5 MG, 2X/DAY
     Dates: start: 20140216
  2. SPIRIVA [Concomitant]
     Dosage: UNK
  3. COMBIVENT [Concomitant]
     Dosage: UNK
  4. PROPYLTHIOURACIL [Concomitant]
     Indication: THYROID DISORDER
     Dosage: 10 MG, 1X/DAY
  5. LISINOPRIL [Concomitant]
     Indication: BLOOD PRESSURE ABNORMAL
     Dosage: UNK

REACTIONS (5)
  - Chest pain [Unknown]
  - Dyspnoea [Unknown]
  - Insomnia [Not Recovered/Not Resolved]
  - Feeling abnormal [Unknown]
  - Abnormal dreams [Not Recovered/Not Resolved]
